FAERS Safety Report 9945982 (Version 1)
Quarter: 2014Q1

REPORT INFORMATION
  Report Type: Report from Study
  Country: US (occurrence: US)
  Receive Date: 20140303
  Receipt Date: 20140303
  Transmission Date: 20141002
  Serious: Yes (Other)
  Sender: FDA-Public Use
  Company Number: PHEH2014US004162

PATIENT
  Sex: Female

DRUGS (1)
  1. STALEVO [Suspect]
     Dosage: 150 MG
     Route: 048

REACTIONS (4)
  - Parkinson^s disease [Unknown]
  - Speech disorder [Unknown]
  - Abasia [Unknown]
  - Confusional state [Unknown]
